FAERS Safety Report 7816888-8 (Version None)
Quarter: 2011Q4

REPORT INFORMATION
  Report Type: 
  Country: None (occurrence: None)
  Receive Date: 20111017
  Receipt Date: 20111010
  Transmission Date: 20120403
  Serious: Yes (Other)
  Sender: FDA-Public Use
  Company Number: IE-GENZYME-RENA-1001342

PATIENT
  Sex: Male

DRUGS (1)
  1. RENAGEL [Suspect]
     Indication: HYPERPHOSPHATAEMIA
     Route: 065

REACTIONS (2)
  - KETOSIS [None]
  - DRUG DISPENSING ERROR [None]
